FAERS Safety Report 5247338-6 (Version None)
Quarter: 2007Q1

REPORT INFORMATION
  Report Type: 
  Country: None (occurrence: None)
  Receive Date: 20070222
  Receipt Date: 20070222
  Transmission Date: 20070707
  Serious: Yes (Hospitalization)
  Sender: FDA-Public Use
  Company Number: None

PATIENT
  Age: 20 Year
  Sex: Female
  Weight: 45.9 kg

DRUGS (2)
  1. MYFORTIC [Suspect]
     Indication: PROPHYLAXIS AGAINST TRANSPLANT REJECTION
     Dosage: 360 MG 2 TABS PO BID
     Route: 048
     Dates: start: 20070127
  2. PROGRAF [Concomitant]

REACTIONS (3)
  - BLOOD CREATININE INCREASED [None]
  - COMPLICATIONS OF TRANSPLANT SURGERY [None]
  - HYDRONEPHROSIS [None]
